FAERS Safety Report 11095248 (Version 1)
Quarter: 2015Q2

REPORT INFORMATION
  Report Type: Spontaneous
  Country: US (occurrence: US)
  Receive Date: 20150506
  Receipt Date: 20150506
  Transmission Date: 20150821
  Serious: No
  Sender: FDA-Public Use
  Company Number: US-SA-2014SA133791

PATIENT
  Age: 4 Year
  Sex: Male

DRUGS (1)
  1. APIDRA SOLOSTAR [Suspect]
     Active Substance: INSULIN GLULISINE
     Indication: TYPE 1 DIABETES MELLITUS
     Dosage: DOSE:  1 UNIT PER 45 CARBS PER MEAL
     Route: 065

REACTIONS (3)
  - Drug administration error [Unknown]
  - Blood glucose increased [Unknown]
  - Drug ineffective [Unknown]
